FAERS Safety Report 6102531-5 (Version None)
Quarter: 2009Q1

REPORT INFORMATION
  Report Type: 
  Country: None (occurrence: None)
  Receive Date: 20090304
  Receipt Date: 20080730
  Transmission Date: 20090719
  Serious: No
  Sender: FDA-Public Use
  Company Number: A0740276A

PATIENT
  Age: 38 Year
  Sex: Male

DRUGS (6)
  1. REQUIP [Suspect]
     Indication: RESTLESS LEGS SYNDROME
     Dosage: 1.25MG PER DAY
     Route: 048
     Dates: start: 20080430
  2. CLONAZEPAM [Concomitant]
  3. PROPRANOLOL [Concomitant]
  4. FLUTICASONE PROPIONATE [Concomitant]
  5. NASONEX [Concomitant]
  6. PRILOSEC [Concomitant]

REACTIONS (5)
  - HEADACHE [None]
  - PARAESTHESIA [None]
  - PHOTOPSIA [None]
  - SKIN BURNING SENSATION [None]
  - TINNITUS [None]
